FAERS Safety Report 7289331-8 (Version None)
Quarter: 2011Q1

REPORT INFORMATION
  Report Type: 
  Country: None (occurrence: None)
  Receive Date: 20110211
  Receipt Date: 20110208
  Transmission Date: 20110831
  Serious: Yes (Hospitalization)
  Sender: FDA-Public Use
  Company Number: ES-PFIZER INC-2011028923

PATIENT
  Age: 71 Year
  Sex: Male

DRUGS (7)
  1. ALDACTONE [Suspect]
     Indication: HYPERTENSION
     Dosage: 50 MG, DIALY
     Route: 048
     Dates: start: 20071001, end: 20100701
  2. OMEPRAZOLE [Concomitant]
     Indication: PROPHYLAXIS
     Dosage: 20 MG, 1X/DAY
     Route: 048
     Dates: start: 20071201
  3. ENALAPRIL [Interacting]
     Indication: HYPERTENSION
     Dosage: 5 MG, DAILY
     Route: 048
     Dates: start: 20051001, end: 20100701
  4. PRAVASTATIN [Concomitant]
     Indication: DYSLIPIDAEMIA
     Dosage: 20 MG, UNK
     Route: 048
     Dates: start: 20050701
  5. SINTROM [Concomitant]
     Indication: CARDIAC VALVE PROSTHESIS USER
     Dosage: UNK
     Route: 048
     Dates: start: 19980101
  6. FUROSEMIDE [Concomitant]
     Indication: RENAL FAILURE CHRONIC
     Dosage: UNK
     Route: 048
     Dates: start: 20050301
  7. METFORMIN [Concomitant]
     Indication: DIABETES MELLITUS
     Dosage: 2125 MG, UNK
     Route: 048
     Dates: start: 20050301

REACTIONS (3)
  - DRUG INTERACTION [None]
  - MYELOPATHY [None]
  - HYPERKALAEMIA [None]
